FAERS Safety Report 15802232 (Version 1)
Quarter: 2019Q1

REPORT INFORMATION
  Report Type: Spontaneous
  Country: US (occurrence: US)
  Receive Date: 20190109
  Receipt Date: 20190109
  Transmission Date: 20190417
  Serious: Yes (Hospitalization, Other)
  Sender: FDA-Public Use
  Company Number: US-BAYER-2019-000733

PATIENT
  Age: 28 Year
  Sex: Male

DRUGS (2)
  1. SORAFENIB (RAF KINASE INHIBITOR) [Suspect]
     Active Substance: SORAFENIB
     Indication: ACUTE MYELOID LEUKAEMIA
     Dosage: REDUCED DOSE OF 200 MG PER DAY
  2. ACETYLSALICYLIC ACID [Concomitant]
     Active Substance: ASPIRIN
     Indication: ARTERIAL OCCLUSIVE DISEASE

REACTIONS (8)
  - Congestive cardiomyopathy [None]
  - Peripheral arterial occlusive disease [None]
  - Myocardial infarction [None]
  - Pain in jaw [None]
  - Intermittent claudication [None]
  - Off label use [None]
  - Product use in unapproved indication [None]
  - Coronary artery disease [None]
